FAERS Safety Report 16903646 (Version 7)
Quarter: 2020Q3

REPORT INFORMATION
  Report Type: Spontaneous
  Country: US (occurrence: US)
  Receive Date: 20191010
  Receipt Date: 20200908
  Transmission Date: 20201102
  Serious: Yes (Hospitalization, Other)
  Sender: FDA-Public Use
  Company Number: US-PFIZER INC-2019434803

PATIENT
  Age: 60 Year
  Sex: Female

DRUGS (5)
  1. XELJANZ XR [Suspect]
     Active Substance: TOFACITINIB CITRATE
     Dosage: 11 MG, DAILY
     Route: 048
     Dates: end: 20200820
  2. XELJANZ XR [Suspect]
     Active Substance: TOFACITINIB CITRATE
     Indication: POLYARTHRITIS
     Dosage: 11 MG, 1X/DAY
     Route: 048
     Dates: start: 20190811
  3. XELJANZ XR [Suspect]
     Active Substance: TOFACITINIB CITRATE
     Indication: RHEUMATOID ARTHRITIS
     Dosage: 11 MG, UNK
     Dates: start: 20190909
  4. XELJANZ XR [Suspect]
     Active Substance: TOFACITINIB CITRATE
     Dosage: 11 MG, DAILY
     Route: 048
     Dates: end: 20200816
  5. XELJANZ XR [Suspect]
     Active Substance: TOFACITINIB CITRATE
     Dosage: 11 MG, 1X/DAY
     Dates: start: 20190910

REACTIONS (17)
  - Diarrhoea [Unknown]
  - Weight increased [Unknown]
  - Hepatic steatosis [Unknown]
  - Lipase increased [Unknown]
  - Hypoaesthesia [Recovered/Resolved]
  - Haemorrhage [Unknown]
  - Peripheral swelling [Unknown]
  - Gait disturbance [Unknown]
  - Hypotension [Unknown]
  - Pain in extremity [Unknown]
  - Blood pressure increased [Unknown]
  - Anorectal disorder [Unknown]
  - Dyspepsia [Unknown]
  - Haemoptysis [Unknown]
  - Haematochezia [Recovered/Resolved]
  - Groin pain [Unknown]
  - Localised infection [Unknown]

NARRATIVE: CASE EVENT DATE: 20200820
